FAERS Safety Report 20082309 (Version 1)
Quarter: 2021Q4

REPORT INFORMATION
  Report Type: Spontaneous
  Country: US (occurrence: None)
  Receive Date: 20211117
  Receipt Date: 20211117
  Transmission Date: 20220303
  Serious: Yes (Death)
  Sender: FDA-Public Use
  Company Number: None

PATIENT
  Age: 23 Year
  Sex: Female

DRUGS (1)
  1. AFINITOR DISPERZ [Suspect]
     Active Substance: EVEROLIMUS
     Dosage: FREQUENCY : DAILY;?
     Dates: start: 20210727, end: 20211112

REACTIONS (1)
  - Cardiac arrest [None]

NARRATIVE: CASE EVENT DATE: 20211112
